FAERS Safety Report 8745704 (Version 3)
Quarter: 2013Q4

REPORT INFORMATION
  Report Type: Spontaneous
  Country: US (occurrence: US)
  Receive Date: 20120827
  Receipt Date: 20131101
  Transmission Date: 20140711
  Serious: No
  Sender: FDA-Public Use
  Company Number: US-009507513-1208USA009080

PATIENT
  Age: 52 Year
  Sex: Male
  Weight: 101.13 kg

DRUGS (1)
  1. SYLATRON [Suspect]
     Indication: MALIGNANT MELANOMA
     Dosage: 600 MICROGRAM, QW 2 VIALS OF SYLATRON 444 MCG, 6 MCG/KG/WEEK
     Route: 058
     Dates: start: 20120815

REACTIONS (2)
  - Chills [Recovered/Resolved]
  - Pyrexia [Recovered/Resolved]
